FAERS Safety Report 8321028-5 (Version None)
Quarter: 2012Q2

REPORT INFORMATION
  Report Type: 
  Country: None (occurrence: None)
  Receive Date: 20120430
  Receipt Date: 20120419
  Transmission Date: 20120825
  Serious: Yes (Other)
  Sender: FDA-Public Use
  Company Number: FR-JNJFOC-20120410551

PATIENT
  Age: 6 Year
  Sex: Female

DRUGS (3)
  1. RISPERDAL [Suspect]
     Route: 048
     Dates: start: 20120419
  2. RISPERDAL [Suspect]
     Dosage: IN EVENING
     Route: 048
     Dates: start: 20120417, end: 20120418
  3. RISPERDAL [Suspect]
     Indication: CHILDHOOD PSYCHOSIS
     Dosage: MORNING AND EVENING
     Route: 048
     Dates: start: 20120412, end: 20120416

REACTIONS (8)
  - TIC [None]
  - VOMITING [None]
  - INCREASED APPETITE [None]
  - ENURESIS [None]
  - POLYDIPSIA [None]
  - DYSKINESIA [None]
  - EYE MOVEMENT DISORDER [None]
  - DIARRHOEA [None]
